FAERS Safety Report 20094961 (Version 1)
Quarter: 2021Q4

REPORT INFORMATION
  Report Type: Spontaneous
  Country: US (occurrence: US)
  Receive Date: 20211122
  Receipt Date: 20211122
  Transmission Date: 20220303
  Serious: Yes (Other)
  Sender: FDA-Public Use
  Company Number: US-AMGEN-USASP2021180565

PATIENT
  Age: 83 Year
  Sex: Female
  Weight: 77.7 kg

DRUGS (3)
  1. MVASI [Suspect]
     Active Substance: BEVACIZUMAB-AWWB
     Indication: Mesothelioma
     Dosage: 1200 MILLIGRAM
     Route: 065
     Dates: start: 20210719
  2. MVASI [Suspect]
     Active Substance: BEVACIZUMAB-AWWB
     Indication: Off label use
  3. PEMETREXED DISODIUM HEMIPENTAHYDRATE [Concomitant]
     Active Substance: PEMETREXED DISODIUM HEMIPENTAHYDRATE
     Indication: Mesothelioma
     Route: 065

REACTIONS (2)
  - Gastrointestinal haemorrhage [Unknown]
  - Off label use [Unknown]

NARRATIVE: CASE EVENT DATE: 20210101
